FAERS Safety Report 18439612 (Version 4)
Quarter: 2021Q3

REPORT INFORMATION
  Report Type: Spontaneous
  Country: US (occurrence: US)
  Receive Date: 20201029
  Receipt Date: 20210819
  Transmission Date: 20211014
  Serious: No
  Sender: FDA-Public Use
  Company Number: US-AKCEA THERAPEUTICS-2020IS001389

PATIENT
  Age: 76 Year
  Sex: Female

DRUGS (2)
  1. TEGSEDI [Suspect]
     Active Substance: INOTERSEN SODIUM
     Indication: HEREDITARY NEUROPATHIC AMYLOIDOSIS
     Route: 058
  2. ISSD (INTEGRATED SYRINGE SAFETY DEVICE [Suspect]
     Active Substance: DEVICE

REACTIONS (12)
  - Crystal urine present [Unknown]
  - Urinary casts [Unknown]
  - Nitrite urine present [Unknown]
  - Urinary occult blood positive [Not Recovered/Not Resolved]
  - Bacterial test positive [Not Recovered/Not Resolved]
  - White blood cells urine positive [Unknown]
  - Blood creatinine abnormal [Unknown]
  - Red blood cells urine positive [Unknown]
  - Urine protein/creatinine ratio increased [Unknown]
  - Urine abnormality [Unknown]
  - Urine leukocyte esterase positive [Unknown]
  - Protein urine present [Unknown]

NARRATIVE: CASE EVENT DATE: 20200818
